FAERS Safety Report 7471748-X (Version None)
Quarter: 2011Q2

REPORT INFORMATION
  Report Type: 
  Country: None (occurrence: None)
  Receive Date: 20110511
  Receipt Date: 20100319
  Transmission Date: 20111010
  Serious: No
  Sender: FDA-Public Use
  Company Number: A0851682A

PATIENT
  Age: 35 Year
  Sex: Female

DRUGS (2)
  1. TYKERB [Suspect]
     Dosage: 1500MG PER DAY
     Route: 065
     Dates: start: 20100312
  2. FEMARA [Suspect]
     Dates: start: 20100312

REACTIONS (1)
  - RASH [None]
